FAERS Safety Report 22229323 (Version 1)
Quarter: 2023Q2

REPORT INFORMATION
  Report Type: Spontaneous
  Country: US (occurrence: US)
  Receive Date: 20230419
  Receipt Date: 20230419
  Transmission Date: 20230722
  Serious: No
  Sender: FDA-Public Use
  Company Number: US-ALLERGAN-2221751US

PATIENT
  Age: 66 Year
  Sex: Female

DRUGS (5)
  1. RESTASIS [Suspect]
     Active Substance: CYCLOSPORINE
     Indication: Product used for unknown indication
     Dosage: 2 GTT, BID
     Route: 047
     Dates: start: 2020
  2. PREDNISONE [Concomitant]
     Active Substance: PREDNISONE
     Route: 047
     Dates: start: 2015
  3. AMLODIPINE [Concomitant]
     Active Substance: AMLODIPINE BESYLATE
     Indication: Hypertension
  4. METOPROLOL [Concomitant]
     Active Substance: METOPROLOL
     Indication: Hypertension
  5. AZELASTINE [Concomitant]
     Active Substance: AZELASTINE
     Indication: Hypersensitivity

REACTIONS (4)
  - Multiple use of single-use product [Unknown]
  - Eye infection bacterial [Recovered/Resolved]
  - Eye irritation [Recovered/Resolved]
  - Product lot number issue [Unknown]

NARRATIVE: CASE EVENT DATE: 20220531
